FAERS Safety Report 20324898 (Version 1)
Quarter: 2022Q1

REPORT INFORMATION
  Report Type: Report from Study
  Country: SK (occurrence: SK)
  Receive Date: 20220111
  Receipt Date: 20220111
  Transmission Date: 20220424
  Serious: Yes (Death, Other)
  Sender: FDA-Public Use
  Company Number: SK-JNJFOC-20210843156

PATIENT
  Age: 65 Year
  Sex: Male

DRUGS (9)
  1. IMBRUVICA [Suspect]
     Active Substance: IBRUTINIB
     Indication: Chronic lymphocytic leukaemia
     Route: 048
     Dates: start: 201905
  2. IMBRUVICA [Suspect]
     Active Substance: IBRUTINIB
     Route: 048
     Dates: start: 20210801
  3. ALGOGESIC [Concomitant]
     Indication: Pain
     Dosage: EVERY 72 HOURS
     Route: 065
  4. ALGOGESIC [Concomitant]
     Dosage: EVERY 72 HOURS
     Route: 065
  5. MORPHINE [Concomitant]
     Active Substance: MORPHINE
     Indication: Pain
     Dosage: 2X1 TABLET
     Route: 065
  6. LUNALDIN [Concomitant]
     Indication: Pain
     Dosage: 2 TABLET EVERY 6 HOURS
  7. ALGESIC [Concomitant]
     Indication: Product used for unknown indication
  8. ALGESIC [Concomitant]
     Dosage: 75 MG CHANGE EVERY 72 HOURS
  9. NALOXONE HYDROCHLORIDE\OXYCODONE HYDROCHLORIDE [Concomitant]
     Active Substance: NALOXONE HYDROCHLORIDE\OXYCODONE HYDROCHLORIDE
     Indication: Product used for unknown indication
     Dosage: 2X2 TABLETS

REACTIONS (2)
  - Death [Fatal]
  - Lung cancer metastatic [Recovering/Resolving]

NARRATIVE: CASE EVENT DATE: 20210725
